FAERS Safety Report 19626209 (Version 2)
Quarter: 2021Q3

REPORT INFORMATION
  Report Type: Spontaneous
  Country: US (occurrence: US)
  Receive Date: 20210729
  Receipt Date: 20210803
  Transmission Date: 20211014
  Serious: Yes (Death, Other)
  Sender: FDA-Public Use
  Company Number: US-ROCHE-2878250

PATIENT
  Age: 58 Year
  Sex: Male

DRUGS (9)
  1. METOPROLOL. [Concomitant]
     Active Substance: METOPROLOL
  2. ATORVASTATIN [Concomitant]
     Active Substance: ATORVASTATIN
  3. GABAPENTIN. [Concomitant]
     Active Substance: GABAPENTIN
     Dosage: DOSE WAS INCREASED IN FEB/2021
  4. TIZANIDINE. [Concomitant]
     Active Substance: TIZANIDINE
     Dosage: 8MG QHS
  5. BACLOFEN. [Concomitant]
     Active Substance: BACLOFEN
  6. CYMBALTA [Concomitant]
     Active Substance: DULOXETINE HYDROCHLORIDE
     Dosage: QHS
  7. ASPIRIN. [Concomitant]
     Active Substance: ASPIRIN
  8. OCREVUS [Suspect]
     Active Substance: OCRELIZUMAB
     Indication: PRIMARY PROGRESSIVE MULTIPLE SCLEROSIS
     Dosage: DATES OF TREATMENT 07/AUG/2019, 21/AUG/2019, 22/JUN/2020 AND THEN DISCONTINUED
     Route: 065
  9. PERCOCET [Concomitant]
     Active Substance: ACETAMINOPHEN\OXYCODONE HYDROCHLORIDE

REACTIONS (3)
  - Neuralgia [Unknown]
  - Hip fracture [Unknown]
  - Colorectal cancer metastatic [Fatal]

NARRATIVE: CASE EVENT DATE: 2006
